FAERS Safety Report 19732784 (Version 1)
Quarter: 2021Q3

REPORT INFORMATION
  Report Type: Spontaneous
  Country: US (occurrence: US)
  Receive Date: 20210821
  Receipt Date: 20210821
  Transmission Date: 20211014
  Serious: Yes (Other)
  Sender: FDA-Public Use
  Company Number: None

PATIENT
  Sex: Male
  Weight: 108 kg

DRUGS (14)
  1. CHANTIX [Suspect]
     Active Substance: VARENICLINE TARTRATE
     Indication: NICOTINE DEPENDENCE
     Dosage: ?          QUANTITY:53 TABLET(S);?
     Route: 048
  2. NEURONIN [Concomitant]
  3. VITAMIN D [Concomitant]
     Active Substance: VITAMIN D NOS
  4. FUROSEMIDE. [Concomitant]
     Active Substance: FUROSEMIDE
  5. MIDODRINE [Concomitant]
     Active Substance: MIDODRINE
  6. XIFAXAN [Concomitant]
     Active Substance: RIFAXIMIN
  7. METOPROLOL. [Concomitant]
     Active Substance: METOPROLOL
  8. TAMOLUSIN [Concomitant]
  9. PROTONIX [Concomitant]
     Active Substance: PANTOPRAZOLE SODIUM
  10. LACTULOSE. [Concomitant]
     Active Substance: LACTULOSE
  11. ASPIRIN. [Concomitant]
     Active Substance: ASPIRIN
  12. LISENPRIL [Concomitant]
  13. IRON WITH VITAMIN  D [Concomitant]
  14. ZINC WITH VITAMIN D [Concomitant]

REACTIONS (1)
  - Malaise [None]
